FAERS Safety Report 6388024-9 (Version None)
Quarter: 2009Q4

REPORT INFORMATION
  Report Type: 
  Country: None (occurrence: None)
  Receive Date: 20091005
  Receipt Date: 20090921
  Transmission Date: 20100525
  Serious: Yes (Other)
  Sender: FDA-Public Use
  Company Number: GB-MYLANLABS-2009S1011077

PATIENT
  Age: 60 Year
  Sex: Male
  Weight: 75 kg

DRUGS (4)
  1. BACLOFEN [Suspect]
     Indication: MULTIPLE SCLEROSIS
     Dates: start: 20080101
  2. CARBAMAZEPINE [Concomitant]
     Indication: MULTIPLE SCLEROSIS
     Route: 048
     Dates: start: 20071115
  3. GLYCOPYRROLATE INJECTION, USP [Concomitant]
     Indication: SALIVARY HYPERSECRETION
     Dates: start: 20011211
  4. TIZANIDINE HCL [Concomitant]
     Indication: MULTIPLE SCLEROSIS
     Route: 048
     Dates: start: 20010219

REACTIONS (2)
  - DIABETES MELLITUS [None]
  - HYPERGLYCAEMIA [None]
